FAERS Safety Report 24215924 (Version 1)
Quarter: 2024Q3

REPORT INFORMATION
  Report Type: Report from Study
  Country: US (occurrence: US)
  Receive Date: 20240816
  Receipt Date: 20240816
  Transmission Date: 20241016
  Serious: Yes (Hospitalization, Other)
  Sender: GILEAD
  Company Number: US-GILEAD-2024-0674428

PATIENT
  Age: 84 Year
  Sex: Female

DRUGS (13)
  1. AMBRISENTAN [Suspect]
     Active Substance: AMBRISENTAN
     Indication: Pulmonary arterial hypertension
     Dosage: 10 MG, QD
     Route: 065
     Dates: start: 202404
  2. TADALAFIL [Suspect]
     Active Substance: TADALAFIL
     Indication: Pulmonary arterial hypertension
     Dosage: 40 MG, QD
     Route: 065
     Dates: start: 202403
  3. REMODULIN [Suspect]
     Active Substance: TREPROSTINIL
     Indication: Pulmonary arterial hypertension
     Dosage: 0.013 UG/KG (AT A PUMP RATE OF 36)
     Route: 058
     Dates: start: 2024
  4. REMODULIN [Suspect]
     Active Substance: TREPROSTINIL
     Dosage: 0.003 UG/KG
     Route: 058
     Dates: start: 2024
  5. REMODULIN [Suspect]
     Active Substance: TREPROSTINIL
     Dosage: 0.014 UG/KG (2.5 MG/ML)
     Route: 058
     Dates: start: 2024
  6. REMODULIN [Suspect]
     Active Substance: TREPROSTINIL
     Dosage: 0.015 UG/KG (2.5 MG/ML)
     Route: 058
     Dates: start: 2024
  7. REMODULIN [Suspect]
     Active Substance: TREPROSTINIL
     Dosage: 0.016 UG/KG (2.5 MG/ML)
     Route: 058
     Dates: start: 2024
  8. TREPROSTINIL SODIUM [Concomitant]
     Active Substance: TREPROSTINIL SODIUM
     Indication: Pulmonary arterial hypertension
     Dosage: 13.1 ML, QD
     Route: 065
     Dates: start: 202403
  9. TREPROSTINIL SODIUM [Concomitant]
     Active Substance: TREPROSTINIL SODIUM
     Dosage: 15.48 ML, QD
     Route: 065
     Dates: start: 202403
  10. TREPROSTINIL SODIUM [Concomitant]
     Active Substance: TREPROSTINIL SODIUM
     Dosage: 0.004 UG/KG
     Route: 058
     Dates: start: 2024
  11. TREPROSTINIL SODIUM [Concomitant]
     Active Substance: TREPROSTINIL SODIUM
     Dosage: 20.24 ML, QD
     Route: 065
     Dates: start: 202403
  12. ADCIRCA [Concomitant]
     Active Substance: TADALAFIL
  13. TORSEMIDE [Concomitant]
     Active Substance: TORSEMIDE

REACTIONS (10)
  - Infusion site infection [Not Recovered/Not Resolved]
  - Pneumonia [Not Recovered/Not Resolved]
  - Infusion site discomfort [Unknown]
  - Swelling face [Not Recovered/Not Resolved]
  - Infusion site pain [Not Recovered/Not Resolved]
  - Infusion site swelling [Not Recovered/Not Resolved]
  - Peripheral swelling [Not Recovered/Not Resolved]
  - Infusion site induration [Unknown]
  - Infusion site nodule [Unknown]
  - Abdominal distension [Not Recovered/Not Resolved]

NARRATIVE: CASE EVENT DATE: 20240101
